FAERS Safety Report 23832100 (Version 1)
Quarter: 2024Q2

REPORT INFORMATION
  Report Type: Spontaneous
  Country: US (occurrence: US)
  Receive Date: 20240508
  Receipt Date: 20240508
  Transmission Date: 20240716
  Serious: No
  Sender: FDA-Public Use
  Company Number: US-009507513-2404USA009118

PATIENT
  Age: 81 Year
  Sex: Male

DRUGS (5)
  1. NOXAFIL [Suspect]
     Active Substance: POSACONAZOLE
     Indication: Cutaneous mucormycosis
     Dosage: 300 MILLIGRAM, BID
     Route: 048
  2. NOXAFIL [Suspect]
     Active Substance: POSACONAZOLE
     Dosage: 300 MG DAILY
     Route: 048
  3. CEFPODOXIME [Concomitant]
     Active Substance: CEFPODOXIME
     Indication: Cellulitis
     Dosage: 300 MG TWICE A DAY
  4. AMPHOTERICIN B [Concomitant]
     Active Substance: AMPHOTERICIN B
     Indication: Cutaneous mucormycosis
     Dosage: 3 MG/KG DAILY
  5. IMMUNE GLOBULIN NOS [Concomitant]
     Active Substance: IMMUNE GLOBULIN NOS
     Indication: Chronic lymphocytic leukaemia
     Route: 042

REACTIONS (1)
  - Product use in unapproved indication [Unknown]
